FAERS Safety Report 13672808 (Version 6)
Quarter: 2017Q3

REPORT INFORMATION
  Report Type: Spontaneous
  Country: JP (occurrence: JP)
  Receive Date: 20170621
  Receipt Date: 20170928
  Transmission Date: 20171127
  Serious: Yes (Death, Other)
  Sender: FDA-Public Use
  Company Number: JP-ARIAD PHARMACEUTICALS, INC-2017JP008396

PATIENT
  Age: 82 Year
  Sex: Female

DRUGS (2)
  1. ICLUSIG [Suspect]
     Active Substance: PONATINIB
     Indication: ACUTE LYMPHOCYTIC LEUKAEMIA
     Dosage: 15 MG, DAILY DOSE
     Route: 048
     Dates: start: 20170607, end: 20170608
  2. ICLUSIG [Suspect]
     Active Substance: PONATINIB
     Dosage: 15 MG, DAILY DOSE
     Route: 048
     Dates: start: 20170613, end: 20170623

REACTIONS (4)
  - Renal failure [Fatal]
  - Tumour lysis syndrome [Fatal]
  - Infection [Fatal]
  - Amylase increased [Recovered/Resolved]

NARRATIVE: CASE EVENT DATE: 201706
